FAERS Safety Report 11105654 (Version 1)
Quarter: 2015Q2

REPORT INFORMATION
  Report Type: Report from Study
  Country: US (occurrence: US)
  Receive Date: 20150512
  Receipt Date: 20150512
  Transmission Date: 20150821
  Serious: Yes (Hospitalization)
  Sender: FDA-Public Use
  Company Number: US-ROCHE-1557300

PATIENT
  Age: 49 Year
  Sex: Female
  Weight: 79.45 kg

DRUGS (8)
  1. METHOTREXATE [Concomitant]
     Active Substance: METHOTREXATE
     Route: 048
  2. REMICADE [Concomitant]
     Active Substance: INFLIXIMAB
  3. HUMIRA [Concomitant]
     Active Substance: ADALIMUMAB
  4. ASPIRIN. [Concomitant]
     Active Substance: ASPIRIN
     Route: 048
  5. ACTEMRA [Suspect]
     Active Substance: TOCILIZUMAB
     Indication: RHEUMATOID ARTHRITIS
     Dosage: MOST RECENT INFUSION PRIOR TO SAE ON 16/OCT/2014, 13/NOV/2014
     Route: 042
     Dates: start: 201211
  6. ACTEMRA [Suspect]
     Active Substance: TOCILIZUMAB
     Route: 042
     Dates: start: 20141211
  7. ACTEMRA [Suspect]
     Active Substance: TOCILIZUMAB
     Route: 042
     Dates: start: 20150112
  8. ENBREL [Concomitant]
     Active Substance: ETANERCEPT

REACTIONS (1)
  - Aortic rupture [Recovered/Resolved]

NARRATIVE: CASE EVENT DATE: 20150210
